FAERS Safety Report 10461201 (Version 1)
Quarter: 2014Q3

REPORT INFORMATION
  Report Type: Spontaneous
  Country: CA (occurrence: CA)
  Receive Date: 20140918
  Receipt Date: 20140918
  Transmission Date: 20150326
  Serious: Yes (Other)
  Sender: FDA-Public Use
  Company Number: CA-CIPLA LTD.-2014CA01347

PATIENT

DRUGS (7)
  1. NAB-PACLITAXEL [Suspect]
     Active Substance: PACLITAXEL
     Indication: OROPHARYNGEAL CANCER
     Dosage: ON DAYS 1 AND 8
     Route: 042
  2. 5-FLUOROURACIL [Suspect]
     Active Substance: FLUOROURACIL
     Indication: OROPHARYNGEAL CANCER
     Dosage: 1000 MG/M2, DAYS 1 TO 4 IN 3 WEEKLY CYCLE
  3. INTENSITY-MODULATED RADIATION THERAPY [Suspect]
     Active Substance: RADIATION THERAPY
     Indication: OROPHARYNGEAL CANCER
     Dosage: 70 GY IN 35 FRACTIONS OVER 7 WEEKS
  4. CARBOPLATIN. [Suspect]
     Active Substance: CARBOPLATIN
     Indication: OROPHARYNGEAL CANCER
     Dosage: 1.5 AUC, FOR 7 WEEKS
     Route: 042
  5. 5-FLUOROURACIL [Suspect]
     Active Substance: FLUOROURACIL
     Dosage: UNK
  6. CIPROFLOXACIN. [Suspect]
     Active Substance: CIPROFLOXACIN
     Indication: PROPHYLAXIS
     Dosage: 500 MG, DAYS 5 -14 OF EACH CYCLE
     Route: 048
  7. CISPLATIN. [Suspect]
     Active Substance: CISPLATIN
     Indication: OROPHARYNGEAL CANCER
     Dosage: ON DAY 1

REACTIONS (3)
  - Lymphadenopathy mediastinal [Unknown]
  - Metastasis [Unknown]
  - Disease progression [Unknown]
